FAERS Safety Report 16735173 (Version 3)
Quarter: 2019Q3

REPORT INFORMATION
  Report Type: Spontaneous
  Country: US (occurrence: US)
  Receive Date: 20190823
  Receipt Date: 20190923
  Transmission Date: 20191005
  Serious: Yes (Disabling)
  Sender: FDA-Public Use
  Company Number: US-SA-2019SA234393

PATIENT
  Age: 46 Year
  Sex: Female
  Weight: 92.08 kg

DRUGS (13)
  1. OMEPRAZOLE. [Concomitant]
     Active Substance: OMEPRAZOLE
     Dosage: UNK
     Dates: start: 20181023
  2. LORAZEPAM. [Concomitant]
     Active Substance: LORAZEPAM
     Dosage: 1 DF, TID
     Route: 048
     Dates: start: 20190529
  3. SPIRIVA RESPIMAT [Concomitant]
     Active Substance: TIOTROPIUM BROMIDE
     Dosage: UNK
     Dates: start: 20190204
  4. LOSARTAN AND HYDROCHLOROTHIAZIDE [Concomitant]
     Active Substance: HYDROCHLOROTHIAZIDE\LOSARTAN POTASSIUM
     Dosage: UNK
     Dates: start: 20190603
  5. XOLAIR [Concomitant]
     Active Substance: OMALIZUMAB
  6. DUPIXENT [Suspect]
     Active Substance: DUPILUMAB
     Dosage: 300 MG, QOW
     Route: 058
     Dates: start: 201908
  7. ALBUTEROL SULFATE. [Concomitant]
     Active Substance: ALBUTEROL SULFATE
     Dosage: UNK
     Dates: start: 20190613
  8. BREO ELLIPTA [Concomitant]
     Active Substance: FLUTICASONE FUROATE\VILANTEROL TRIFENATATE
     Dosage: 1 DF, QD
     Dates: start: 20181126
  9. CETRIZINE [Concomitant]
     Active Substance: CETIRIZINE HYDROCHLORIDE
     Dosage: 1 DF, HS
     Route: 048
     Dates: start: 20181102
  10. VENTOLIN HFA [Concomitant]
     Active Substance: ALBUTEROL SULFATE
     Dosage: 2 PUFF USING INHALER EVERY 4 HOURS AS NEEDED
     Route: 055
     Dates: start: 20190627
  11. DUPIXENT [Suspect]
     Active Substance: DUPILUMAB
     Indication: ASTHMA
     Dosage: 600 MG, 1X
     Route: 058
     Dates: start: 20190729, end: 20190729
  12. EPIPEN [Concomitant]
     Active Substance: EPINEPHRINE
     Dosage: 1 DF
     Route: 030
     Dates: start: 20180112
  13. VITAMIN D2 [Concomitant]
     Active Substance: ERGOCALCIFEROL
     Dosage: 1 DF, QW
     Route: 048
     Dates: start: 20180503

REACTIONS (12)
  - Flushing [Recovered/Resolved]
  - Injection site rash [Not Recovered/Not Resolved]
  - Unevaluable event [Unknown]
  - Injection site plaque [Not Recovered/Not Resolved]
  - Fatigue [Recovered/Resolved]
  - Dizziness [Recovered/Resolved]
  - Somnolence [Unknown]
  - Dyspnoea [Recovered/Resolved]
  - Hallucination, auditory [Recovered/Resolved]
  - Chills [Recovered/Resolved]
  - Injection site erythema [Not Recovered/Not Resolved]
  - Skin exfoliation [Not Recovered/Not Resolved]

NARRATIVE: CASE EVENT DATE: 20190808
